FAERS Safety Report 8431193-7 (Version None)
Quarter: 2012Q2

REPORT INFORMATION
  Report Type: 
  Country: None (occurrence: None)
  Receive Date: 20120612
  Receipt Date: 20120608
  Transmission Date: 20120825
  Serious: Yes (Other)
  Sender: FDA-Public Use
  Company Number: PHHY2012PL049354

PATIENT
  Sex: Female
  Weight: 53 kg

DRUGS (3)
  1. CYCLOSPORINE [Suspect]
     Dosage: 2 MG/KG, UNK
     Route: 042
  2. PREDNISONE [Suspect]
     Dosage: 20 MG, UNK
  3. MESALAMINE [Suspect]
     Dosage: 3 MG, UNK

REACTIONS (1)
  - DEPRESSION [None]
